FAERS Safety Report 4692953-1 (Version None)
Quarter: 2005Q2

REPORT INFORMATION
  Report Type: 
  Country: None (occurrence: None)
  Receive Date: 20050615
  Receipt Date: 20050531
  Transmission Date: 20051028
  Serious: Yes (Other)
  Sender: FDA-Public Use
  Company Number: USA040568746

PATIENT
  Age: 71 Year
  Sex: Female
  Weight: 114 kg

DRUGS (1)
  1. FORTEO [Suspect]
     Indication: OSTEOPOROSIS
     Dosage: 20 UG/1 DAY
     Dates: start: 20040511

REACTIONS (15)
  - ASTHENIA [None]
  - BALANCE DISORDER [None]
  - BLOOD GLUCOSE INCREASED [None]
  - DISCOMFORT [None]
  - DIZZINESS POSTURAL [None]
  - DYSSTASIA [None]
  - FALL [None]
  - FATIGUE [None]
  - HEART RATE INCREASED [None]
  - INTERVERTEBRAL DISC DISORDER [None]
  - MUSCLE SPASMS [None]
  - NAUSEA [None]
  - PHARMACEUTICAL PRODUCT COMPLAINT [None]
  - POST PROCEDURAL PAIN [None]
  - WALKING AID USER [None]
